FAERS Safety Report 4666649-6 (Version None)
Quarter: 2005Q2

REPORT INFORMATION
  Report Type: 
  Country: None (occurrence: None)
  Receive Date: 20050518
  Receipt Date: 20050405
  Transmission Date: 20051028
  Serious: Yes (Hospitalization)
  Sender: FDA-Public Use
  Company Number: 2005000680

PATIENT
  Age: 70 Year
  Sex: Female
  Weight: 57.6 kg

DRUGS (11)
  1. ERLOTONIB HCL (TABLET) [Suspect]
     Indication: PANCREATIC CARCINOMA
     Dosage: 800 MG (Q WEEK), ORAL
     Route: 048
     Dates: start: 20050330, end: 20050331
  2. PEMETREXED (PEMETREXED) (INJECTION FOR INFUSION) [Suspect]
     Indication: PANCREATIC CARCINOMA
     Dosage: 500 MG/M^2 (Q3W), INTRAVENOUS
     Route: 042
     Dates: start: 20050329
  3. OXYCODONE (OXYCODONE) [Concomitant]
  4. FENTANYL [Concomitant]
  5. LEVOTHYROXINE SODIUM [Concomitant]
  6. FUROSEMIDE [Concomitant]
  7. MULTIVITAMIN [Concomitant]
  8. VITAMIN C (ASCORBIC ACID) [Concomitant]
  9. PANCREATIC ENZYMES (PANCREATIC HORMONES) [Concomitant]
  10. DEXAMETHASONE [Concomitant]
  11. VITAMIN B12 [Concomitant]

REACTIONS (7)
  - ACCIDENTAL OVERDOSE [None]
  - ASTHENIA [None]
  - BLOOD BILIRUBIN INCREASED [None]
  - HAEMOGLOBIN DECREASED [None]
  - HYPERHIDROSIS [None]
  - INCORRECT DOSE ADMINISTERED [None]
  - INTENTION TREMOR [None]
